FAERS Safety Report 7302058-9 (Version None)
Quarter: 2011Q1

REPORT INFORMATION
  Report Type: 
  Country: None (occurrence: None)
  Receive Date: 20110208
  Receipt Date: 20110127
  Transmission Date: 20110831
  Serious: Yes (Hospitalization)
  Sender: FDA-Public Use
  Company Number: 025204

PATIENT
  Sex: Female

DRUGS (5)
  1. VITAMIN D [Concomitant]
  2. CIMZIA [Suspect]
     Indication: CROHN'S DISEASE
     Dosage: (400 MG 1X/4 WEEKS SUBCUTANEOUS)
     Route: 058
     Dates: start: 20101213
  3. OMEPRAZOLE [Concomitant]
  4. MERCAPTOPURINE [Concomitant]
  5. CALCARB /00108001/ [Concomitant]

REACTIONS (4)
  - GASTROINTESTINAL INFLAMMATION [None]
  - ABDOMINAL PAIN UPPER [None]
  - INFREQUENT BOWEL MOVEMENTS [None]
  - SMALL INTESTINAL OBSTRUCTION [None]
